FAERS Safety Report 8912277 (Version 1)
Quarter: 2012Q4

REPORT INFORMATION
  Report Type: 
  Country: US (occurrence: US)
  Receive Date: 20121116
  Receipt Date: 20121116
  Transmission Date: 20130627
  Serious: No
  Sender: FDA-Public Use
  Company Number: US-009507513-1211USA004187

PATIENT
  Sex: Male

DRUGS (2)
  1. SINGULAIR [Suspect]
     Indication: ASTHMA
     Dosage: UNK
     Route: 048
     Dates: start: 199512
  2. SINGULAIR [Suspect]
     Indication: HYPERSENSITIVITY

REACTIONS (9)
  - Fear [Unknown]
  - Anxiety [Unknown]
  - Depression [Unknown]
  - Stress [Unknown]
  - Suicidal ideation [Unknown]
  - Psychiatric symptom [Unknown]
  - Mood swings [Unknown]
  - Anger [Unknown]
  - Speech disorder [Unknown]
